FAERS Safety Report 16033828 (Version 1)
Quarter: 2019Q2

REPORT INFORMATION
  Report Type: Spontaneous
  Country: US (occurrence: US)
  Receive Date: 20190305
  Receipt Date: 20190305
  Transmission Date: 20190711
  Serious: No
  Sender: FDA-Public Use
  Company Number: None

PATIENT

DRUGS (2)
  1. METFORMIN [Suspect]
     Active Substance: METFORMIN HYDROCHLORIDE
  2. TRADJENTA [Suspect]
     Active Substance: LINAGLIPTIN

REACTIONS (2)
  - Nausea [None]
  - Drug ineffective [None]
